FAERS Safety Report 6640879-6 (Version None)
Quarter: 2010Q1

REPORT INFORMATION
  Report Type: 
  Country: None (occurrence: None)
  Receive Date: 20100318
  Receipt Date: 20100308
  Transmission Date: 20100710
  Serious: Yes (Other)
  Sender: FDA-Public Use
  Company Number: GB-PFIZER INC-2009312560

PATIENT
  Age: 17 Year
  Sex: Male

DRUGS (17)
  1. ACYCLOVIR SODIUM [Suspect]
     Indication: PROPHYLAXIS
  2. TRIMETHOPRIM + SULFAMETHOXAZOLE [Suspect]
  3. DEXRAZOXANE [Suspect]
     Indication: BURKITT'S LYMPHOMA
  4. DOXORUBICIN HCL [Suspect]
     Indication: BURKITT'S LYMPHOMA
  5. METHOTREXATE SODIUM [Suspect]
     Indication: BURKITT'S LYMPHOMA
     Route: 037
  6. CYCLOPHOSPHAMIDE [Suspect]
  7. ONCOVIN [Suspect]
     Indication: BURKITT'S LYMPHOMA
  8. VP-16 [Suspect]
     Indication: BURKITT'S LYMPHOMA
  9. ARA-C [Suspect]
     Indication: BURKITT'S LYMPHOMA
  10. ITRACONAZOLE [Suspect]
     Indication: PROPHYLAXIS
  11. MERCAPTOPURINE [Suspect]
     Indication: BURKITT'S LYMPHOMA
  12. RITUXIMAB [Suspect]
     Indication: BURKITT'S LYMPHOMA
     Dosage: 375 MG/M2, UNK
  13. TACROLIMUS [Suspect]
     Indication: IMMUNOSUPPRESSION
  14. THIOGUANINE [Suspect]
     Indication: BURKITT'S LYMPHOMA
  15. CAELYX [Suspect]
     Indication: BURKITT'S LYMPHOMA
     Route: 042
  16. PREDNISOLONE [Suspect]
     Indication: BURKITT'S LYMPHOMA
  17. PREDNISOLONE [Concomitant]

REACTIONS (2)
  - NEUTROPENIA [None]
  - RENAL IMPAIRMENT [None]
